FAERS Safety Report 8260846-9 (Version None)
Quarter: 2012Q2

REPORT INFORMATION
  Report Type: 
  Country: None (occurrence: None)
  Receive Date: 20120402
  Receipt Date: 20120322
  Transmission Date: 20120825
  Serious: Yes (Other)
  Sender: FDA-Public Use
  Company Number: DSA_55614_2012

PATIENT
  Age: 51 Year
  Sex: Female

DRUGS (5)
  1. BUPROPION HYDROCHLORIDE [Suspect]
     Indication: DEPRESSION
     Dosage: 150 MG QD ORAL
     Route: 048
  2. LEVOTHYROXINE SODIUM [Concomitant]
  3. KLONOPIN [Concomitant]
  4. LAMICTAL [Concomitant]
  5. RISPERDAL [Concomitant]

REACTIONS (3)
  - MONARTHRITIS [None]
  - JOINT EFFUSION [None]
  - ANGIOEDEMA [None]
